FAERS Safety Report 15058286 (Version 1)
Quarter: 2018Q2

REPORT INFORMATION
  Report Type: Report from Study
  Country: None (occurrence: US)
  Receive Date: 20180625
  Receipt Date: 20180625
  Transmission Date: 20180711
  Serious: Yes (Other)
  Sender: FDA-Public Use
  Company Number: US-ABBVIE-18K-163-2394893-00

PATIENT
  Age: 62 Year
  Sex: Male

DRUGS (1)
  1. HUMIRA [Suspect]
     Active Substance: ADALIMUMAB
     Indication: CROHN^S DISEASE
     Route: 058

REACTIONS (8)
  - Suture related complication [Unknown]
  - Balance disorder [Not Recovered/Not Resolved]
  - Post procedural haemorrhage [Unknown]
  - Atrial fibrillation [Not Recovered/Not Resolved]
  - Suture insertion [Unknown]
  - Road traffic accident [Recovered/Resolved]
  - Dizziness [Unknown]
  - Rib fracture [Unknown]

NARRATIVE: CASE EVENT DATE: 2018
